FAERS Safety Report 9966563 (Version 2)
Quarter: 2014Q1

REPORT INFORMATION
  Report Type: Spontaneous
  Country: US (occurrence: US)
  Receive Date: 20140305
  Receipt Date: 20140305
  Transmission Date: 20141002
  Serious: No
  Sender: FDA-Public Use
  Company Number: US-ABBVIE-13P-163-1106772-00

PATIENT
  Age: 33 Year
  Sex: Male
  Weight: 76.73 kg

DRUGS (4)
  1. HUMIRA [Suspect]
     Indication: CROHN^S DISEASE
     Route: 058
     Dates: start: 20130618, end: 20130618
  2. HUMIRA [Suspect]
     Route: 058
     Dates: start: 201306
  3. PREDNISONE [Concomitant]
     Indication: CROHN^S DISEASE
  4. IMURAN [Concomitant]
     Indication: CROHN^S DISEASE

REACTIONS (2)
  - Circumstance or information capable of leading to medication error [Recovered/Resolved]
  - Injection site pruritus [Recovered/Resolved]
